FAERS Safety Report 8584510-1 (Version None)
Quarter: 2012Q3

REPORT INFORMATION
  Report Type: 
  Country: None (occurrence: None)
  Receive Date: 20120810
  Receipt Date: 20120806
  Transmission Date: 20120928
  Serious: Yes (Other)
  Sender: FDA-Public Use
  Company Number: US-PFIZER INC-2012047091

PATIENT
  Sex: Female

DRUGS (1)
  1. LYRICA [Suspect]
     Dosage: 300MG, UNK

REACTIONS (3)
  - MEMORY IMPAIRMENT [None]
  - WITHDRAWAL SYNDROME [None]
  - MALAISE [None]
